FAERS Safety Report 6542568-5 (Version None)
Quarter: 2010Q1

REPORT INFORMATION
  Report Type: 
  Country: None (occurrence: None)
  Receive Date: 20100119
  Receipt Date: 20100107
  Transmission Date: 20100710
  Serious: Yes (Hospitalization)
  Sender: FDA-Public Use
  Company Number: US-WATSON-2010-00174

PATIENT
  Age: 83 Year
  Sex: Female
  Weight: 45.351 kg

DRUGS (2)
  1. FENTANYL-25 [Suspect]
     Indication: PAIN
     Dosage: 1 PATCH, Q 3 DAYS
     Route: 062
     Dates: start: 20100101, end: 20100103
  2. FENTANYL-50 [Suspect]
     Indication: PAIN
     Dosage: UNK
     Route: 062
     Dates: end: 20100101

REACTIONS (6)
  - DEMENTIA [None]
  - DRUG ADMINISTRATION ERROR [None]
  - DRUG WITHDRAWAL SYNDROME [None]
  - DYSKINESIA [None]
  - FLUID OVERLOAD [None]
  - PSYCHOMOTOR HYPERACTIVITY [None]
